FAERS Safety Report 24075126 (Version 4)
Quarter: 2025Q1

REPORT INFORMATION
  Report Type: Spontaneous
  Country: US (occurrence: US)
  Receive Date: 20240710
  Receipt Date: 20250125
  Transmission Date: 20250408
  Serious: Yes (Other)
  Sender: BRISTOL-MYERS SQUIBB COMPANY
  Company Number: US-BRISTOL-MYERS SQUIBB COMPANY-2024-109356

PATIENT
  Age: 81 Year
  Sex: Female
  Weight: 68.95 kg

DRUGS (5)
  1. THALOMID [Suspect]
     Active Substance: THALIDOMIDE
     Indication: Myelofibrosis
     Route: 048
     Dates: start: 20230925
  2. THALOMID [Suspect]
     Active Substance: THALIDOMIDE
     Indication: Iron deficiency anaemia
     Dosage: FREQUENCY: DAILY ON DAYS 1-28 OF 28 DAY CYCLE.
     Route: 048
     Dates: start: 20240709
  3. THALOMID [Suspect]
     Active Substance: THALIDOMIDE
     Route: 048
     Dates: start: 20230925
  4. THALOMID [Suspect]
     Active Substance: THALIDOMIDE
     Dates: start: 20230918
  5. DEFERASIROX [Concomitant]
     Active Substance: DEFERASIROX
     Indication: Product used for unknown indication

REACTIONS (5)
  - Hepatic iron overload [Unknown]
  - Full blood count abnormal [Not Recovered/Not Resolved]
  - Skin ulcer [Not Recovered/Not Resolved]
  - Anaemia [Unknown]
  - Malignant neoplasm progression [Unknown]
